FAERS Safety Report 21515990 (Version 1)
Quarter: 2022Q4

REPORT INFORMATION
  Report Type: Spontaneous
  Country: US (occurrence: US)
  Receive Date: 20221027
  Receipt Date: 20221027
  Transmission Date: 20230112
  Serious: No
  Sender: FDA-Public Use
  Company Number: US-SA-SAC20221025000290

PATIENT
  Age: 52 Year
  Sex: Female

DRUGS (4)
  1. DUPIXENT [Suspect]
     Active Substance: DUPILUMAB
     Indication: Dermatitis atopic
     Dosage: 600 MG, 1X
     Route: 058
     Dates: start: 20221019, end: 20221019
  2. METAXALONE [Concomitant]
     Active Substance: METAXALONE
  3. VALTREX [Concomitant]
     Active Substance: VALACYCLOVIR HYDROCHLORIDE
  4. ALLERGY [CROMOGLICATE SODIUM] [Concomitant]

REACTIONS (5)
  - Gastrooesophageal reflux disease [Unknown]
  - Migraine [Unknown]
  - Pain in extremity [Unknown]
  - Oropharyngeal pain [Unknown]
  - Dizziness [Unknown]

NARRATIVE: CASE EVENT DATE: 20221019
